FAERS Safety Report 6586882-6 (Version None)
Quarter: 2010Q1

REPORT INFORMATION
  Report Type: 
  Country: None (occurrence: None)
  Receive Date: 20100217
  Receipt Date: 20090909
  Transmission Date: 20100710
  Serious: Yes (Hospitalization)
  Sender: FDA-Public Use
  Company Number: US-ALLERGAN-0910711US

PATIENT
  Age: 59 Year
  Sex: Female

DRUGS (4)
  1. BOTOX COSMETIC [Suspect]
     Indication: SKIN WRINKLING
     Dosage: 38 UNITS, SINGLE
     Route: 030
     Dates: start: 20090718, end: 20090718
  2. TOPRAMAX [Concomitant]
     Indication: HEADACHE
     Dosage: 10 MG, QD
  3. NABUMETONE [Concomitant]
     Indication: ANTIINFLAMMATORY THERAPY
     Dosage: 750 MG, QD
  4. BUPROPION [Concomitant]
     Indication: DEPRESSION
     Dosage: 200 MG, QD

REACTIONS (3)
  - ASTHENIA [None]
  - SEPSIS [None]
  - TINNITUS [None]
